FAERS Safety Report 4667982-4 (Version None)
Quarter: 2005Q2

REPORT INFORMATION
  Report Type: 
  Country: None (occurrence: None)
  Receive Date: 20050519
  Receipt Date: 20050503
  Transmission Date: 20051028
  Serious: Yes (Death, Life-Threatening)
  Sender: FDA-Public Use
  Company Number: MEDI-0003398

PATIENT
  Age: 11 Month
  Sex: Female
  Weight: 5.3 kg

DRUGS (3)
  1. SYNAGIS [Suspect]
     Indication: ANTIVIRAL PROPHYLAXIS
     Dosage: SEE IMAGE
     Route: 030
     Dates: start: 20050118, end: 20050221
  2. SYNAGIS [Suspect]
     Indication: ANTIVIRAL PROPHYLAXIS
     Dosage: SEE IMAGE
     Route: 030
     Dates: start: 20050118
  3. SYNAGIS [Suspect]

REACTIONS (2)
  - BRONCHIOLITIS [None]
  - VIRUS SEROLOGY TEST POSITIVE [None]
